FAERS Safety Report 24415145 (Version 1)
Quarter: 2024Q4

REPORT INFORMATION
  Report Type: Report from Study
  Country: US (occurrence: US)
  Receive Date: 20241009
  Receipt Date: 20241009
  Transmission Date: 20250114
  Serious: Yes (Other)
  Sender: ABBVIE
  Company Number: US-ABBVIE-5279735

PATIENT
  Age: 38 Year
  Sex: Female
  Weight: 58 kg

DRUGS (4)
  1. HUMIRA [Suspect]
     Active Substance: ADALIMUMAB
     Indication: Crohn^s disease
     Dosage: FORM STRENGTH: 40 MILLIGRAM, CITRATE FREE
     Route: 058
     Dates: start: 20211115
  2. HUMIRA [Suspect]
     Active Substance: ADALIMUMAB
     Route: 058
     Dates: start: 20211130, end: 20230404
  3. METHOTREXATE [Concomitant]
     Active Substance: METHOTREXATE
     Indication: Joint swelling
     Route: 048
     Dates: start: 202305, end: 202307
  4. SULFASALAZINE [Concomitant]
     Active Substance: SULFASALAZINE
     Indication: Joint swelling
     Route: 048
     Dates: start: 202206, end: 202305

REACTIONS (4)
  - Lupus-like syndrome [Unknown]
  - Joint swelling [Recovered/Resolved]
  - Rash erythematous [Recovered/Resolved]
  - Tendonitis [Recovered/Resolved]

NARRATIVE: CASE EVENT DATE: 20220401
